FAERS Safety Report 19953162 (Version 1)
Quarter: 2021Q4

REPORT INFORMATION
  Report Type: Spontaneous
  Country: US (occurrence: US)
  Receive Date: 20211014
  Receipt Date: 20211014
  Transmission Date: 20220303
  Serious: Yes (Hospitalization)
  Sender: FDA-Public Use
  Company Number: US-STRIDES ARCOLAB LIMITED-2021SP028572

PATIENT
  Age: 27 Year
  Sex: Female

DRUGS (11)
  1. PREDNISOLONE [Suspect]
     Active Substance: PREDNISOLONE
     Indication: Lung transplant
     Dosage: UNK
     Route: 065
  2. TACROLIMUS [Suspect]
     Active Substance: TACROLIMUS
     Indication: Lung transplant
     Dosage: UNK
     Route: 065
  3. MYCOPHENOLATE MOFETIL [Suspect]
     Active Substance: MYCOPHENOLATE MOFETIL
     Indication: Lung transplant
     Dosage: UNK
     Route: 065
  4. BASILIXIMAB [Suspect]
     Active Substance: BASILIXIMAB
     Indication: Lung transplant
     Dosage: UNK, INDUCTION
     Route: 065
  5. METHYLPREDNISOLONE [Suspect]
     Active Substance: METHYLPREDNISOLONE
     Indication: Lung transplant
     Dosage: UNK, INDUCTION
     Route: 065
  6. MICAFUNGIN. [Concomitant]
     Active Substance: MICAFUNGIN SODIUM
     Indication: Antifungal prophylaxis
     Dosage: 100 MILLIGRAM, PER DAY
     Route: 042
  7. POSACONAZOLE [Concomitant]
     Active Substance: POSACONAZOLE
     Indication: Antifungal prophylaxis
     Dosage: 300 MILLIGRAM, PER DAY
     Route: 048
  8. AMPHOTERICIN B [Concomitant]
     Active Substance: AMPHOTERICIN B
     Indication: Antifungal prophylaxis
     Dosage: UNK, NEBULISED
     Route: 065
  9. VALGANCICLOVIR [Concomitant]
     Active Substance: VALGANCICLOVIR
     Indication: Antiviral prophylaxis
     Dosage: 900 MILLIGRAM, PER DAY
     Route: 048
  10. COTRIMOXAZOLE [Concomitant]
     Active Substance: SULFAMETHOXAZOLE\TRIMETHOPRIM
     Indication: Antifungal prophylaxis
     Dosage: UNK
     Route: 065
  11. MEROPENEM [Concomitant]
     Active Substance: MEROPENEM
     Indication: Antibiotic prophylaxis
     Dosage: UNK
     Route: 065

REACTIONS (4)
  - Pleural effusion [Recovered/Resolved]
  - Pneumonia fungal [Recovered/Resolved]
  - Condition aggravated [Recovered/Resolved]
  - Off label use [Unknown]
